FAERS Safety Report 7588726 (Version 2)
Quarter: 2012Q4

REPORT INFORMATION
  Report Type: Spontaneous
  Country: US (occurrence: None)
  Receive Date: 20100907
  Receipt Date: 20121108
  Transmission Date: 20130627
  Serious: Yes (Disabling, Other)
  Sender: FDA-Public Use
  Company Number: 2010MA002303

PATIENT
  Sex: Male

DRUGS (25)
  1. METOCLOPRAMIDE [Suspect]
     Indication: GASTROINTESTINAL DISORDER
     Dosage: 10 MG:TID:PO
     Dates: start: 20010321, end: 20060126
  2. ALBUTEROL [Concomitant]
  3. PLAVIX [Concomitant]
  4. YOHIMBINE [Concomitant]
  5. ACETAMINOPHEN [Concomitant]
  6. CERVISTATIN [Concomitant]
  7. FLUTICASONE [Concomitant]
  8. ATENOLOL [Concomitant]
  9. OMEPRAZOLE [Concomitant]
  10. ACIPHEX [Concomitant]
  11. LORAZEPAM [Concomitant]
  12. ASPIRIN [Concomitant]
  13. VITAMIN E [Concomitant]
  14. ZYRTEC [Concomitant]
  15. LANSOPRAZOLE [Concomitant]
  16. AMBIEN [Concomitant]
  17. ZOLOFT [Concomitant]
  18. MOBIC [Concomitant]
  19. PULMICORT [Concomitant]
  20. HCTZ [Concomitant]
  21. EFFEXOR [Concomitant]
  22. TRAZODONE [Concomitant]
  23. CLARITIN [Concomitant]
  24. FLOMAX [Concomitant]
  25. SUCRALFATE [Concomitant]

REACTIONS (10)
  - Dyskinesia [None]
  - Nervous system disorder [None]
  - Extrapyramidal disorder [None]
  - Activities of daily living impaired [None]
  - Deformity [None]
  - Pain [None]
  - Injury [None]
  - Anxiety [None]
  - Mental disorder [None]
  - Impaired work ability [None]
